FAERS Safety Report 15567274 (Version 2)
Quarter: 2018Q4

REPORT INFORMATION
  Report Type: Spontaneous
  Country: KR (occurrence: KR)
  Receive Date: 20181030
  Receipt Date: 20181210
  Transmission Date: 20190205
  Serious: Yes (Hospitalization, Disabling, Other)
  Sender: FDA-Public Use
  Company Number: KR-009507513-1810KOR011963

PATIENT
  Sex: Male

DRUGS (39)
  1. DULCOLAX NOS [Concomitant]
     Active Substance: BISACODYL OR DOCUSATE SODIUM
     Dosage: QUANTITY: 1; DAYS: 1
     Dates: start: 20180821
  2. DONG A GASTER [Concomitant]
     Dosage: QUANTITY: 2; DAYS: 80
     Dates: start: 20180805, end: 20181001
  3. DIFLUCAN [Concomitant]
     Active Substance: FLUCONAZOLE
     Dosage: QUANTITY: 2; DAYS: 1
     Dates: start: 20180809
  4. MORPHINE HCL JEIL [Concomitant]
     Dosage: QUANTITY: 1; DAYS: 2
     Dates: start: 20180816, end: 20180828
  5. TRAMOL (ACETAMINOPHEN) [Concomitant]
     Dosage: QUANTITY: 6; DAYS: 1
     Dates: start: 20180911
  6. DUPHALAC [Concomitant]
     Active Substance: LACTULOSE
     Dosage: QUANTITY: 1; DAYS: 26
     Dates: start: 20180906, end: 20180930
  7. ENCOVER [Concomitant]
     Dosage: QUANTITY: 2; DAYS: 10
     Dates: start: 20180901, end: 20180909
  8. ENCOVER [Concomitant]
     Dosage: QUANTITY: 2; DAYS: 14
     Dates: start: 20180726, end: 20181001
  9. HARMONILAN [Concomitant]
     Dosage: QUANTITY: 2; DAYS: 5
     Dates: start: 20180910, end: 20180914
  10. KEYTRUDA [Suspect]
     Active Substance: PEMBROLIZUMAB
     Indication: MALIGNANT NEOPLASM OF THYMUS
     Dosage: UNK
     Dates: start: 20180831, end: 20180831
  11. KEYTRUDA [Suspect]
     Active Substance: PEMBROLIZUMAB
     Dosage: UNK
     Dates: start: 20180927, end: 20180927
  12. HARMONILAN [Concomitant]
     Dosage: QUANTITY: 2; DAYS: 10
     Dates: start: 20181001
  13. MORPHINE HCL JEIL [Concomitant]
     Dosage: QUANTITY: 2; DAYS: 4
     Dates: start: 20180729, end: 20180927
  14. BETMIGA [Concomitant]
     Active Substance: MIRABEGRON
     Dosage: QUANTITY: 1; DAYS: 2
     Dates: start: 20180906
  15. DULCOLAX S [Concomitant]
     Dosage: QUANTITY: 2; DAYS: 25
     Dates: start: 20180810, end: 20180905
  16. YUHAN DEXAMETHASONE (DEXAMETHASONE) [Concomitant]
     Dosage: QUANTITY: 1; DAYS: 14
     Dates: start: 20180809, end: 20180910
  17. MORPHINE HCL JEIL [Concomitant]
     Dosage: QUANTITY: 4; DAYS: 1
     Dates: start: 20180926
  18. DOTAREM [Concomitant]
     Active Substance: GADOTERATE MEGLUMINE
     Dosage: QUANTITY: 1; DAYS: 1
     Dates: start: 20180730
  19. SEPTRIN [Concomitant]
     Active Substance: SULFAMETHOXAZOLE\TRIMETHOPRIM
     Dosage: QUANTITY: 1; DAYS: 20
     Dates: start: 20180827, end: 20180914
  20. DONG A GASTER [Concomitant]
     Dosage: QUANTITY: 1; DAYS: 2
     Dates: start: 20180805, end: 20180821
  21. AGIO [Concomitant]
     Dosage: QUANTITY: 2; DAYS: 4
     Dates: start: 20180906, end: 20180909
  22. CYMBALTA [Concomitant]
     Active Substance: DULOXETINE HYDROCHLORIDE
     Dosage: QUANTITY: 1; DAYS: 1
     Dates: start: 20180726
  23. YUHAN DEXAMETHASONE (DEXAMETHASONE) [Concomitant]
     Dosage: QUANTITY: 2; DAYS: 11
     Dates: start: 20180626, end: 20180901
  24. TRAMOL (ACETAMINOPHEN) [Concomitant]
     Dosage: QUANTITY: 4; DAYS: 2
     Dates: start: 20180918, end: 20180919
  25. ESROBAN [Concomitant]
     Dosage: QUANTITY: 1; DAYS: 6
     Dates: start: 20180809, end: 20180929
  26. YUHAN DEXAMETHASONE (DEXAMETHASONE) [Concomitant]
     Dosage: QUANTITY: 3; DAYS: 1
     Dates: start: 20180827
  27. MORPHINE HCL JEIL [Concomitant]
     Dosage: QUANTITY: 3; DAYS: 5
     Dates: start: 20180727, end: 20180928
  28. MORPHINE HCL JEIL [Concomitant]
     Dosage: QUANTITY: 6; DAYS: 1
     Dates: start: 20180816
  29. MEGACE F [Concomitant]
     Dosage: QUANTITY: 1; DAYS: 1
     Dates: start: 20180930
  30. ARONAMIN C PLUS [Concomitant]
     Dosage: QUANTITY: 1; DAYS 24
     Dates: start: 20181001
  31. DULCOLAX NOS [Concomitant]
     Active Substance: BISACODYL OR DOCUSATE SODIUM
     Dosage: QUANTITY: 2; DAYS: 26
     Dates: start: 20180821, end: 20181001
  32. ENCOVER [Concomitant]
     Dosage: QUANTITY: 3; DAYS: 8
     Dates: start: 20180824, end: 20180831
  33. DIFLUCAN [Concomitant]
     Active Substance: FLUCONAZOLE
     Dosage: QUANTITY: 1; DAYS: 6
     Dates: start: 20180809, end: 20180814
  34. MORPHINE HCL JEIL [Concomitant]
     Dosage: QUANTITY: 5; DAYS: 1
     Dates: start: 20180817
  35. KEYTRUDA [Suspect]
     Active Substance: PEMBROLIZUMAB
     Dosage: UNK
     Dates: start: 20181022
  36. TRAMOL (ACETAMINOPHEN) [Concomitant]
     Dosage: QUANTITY: 2; DAYS: 4
     Dates: start: 20180908, end: 20180920
  37. HARNAL [Concomitant]
     Active Substance: TAMSULOSIN HYDROCHLORIDE
     Dosage: QUANTITY: 1; DAYS: 59
     Dates: start: 20180828, end: 20181001
  38. HARMONILAN [Concomitant]
     Dosage: QUANTITY: 1; DAYS: 10
     Dates: start: 20180901, end: 20180910
  39. YUHAN DEXAMETHASONE (DEXAMETHASONE) [Concomitant]
     Dosage: QUANTITY: 4; DAYS: 16
     Dates: start: 20180727, end: 20180826

REACTIONS (6)
  - Malignant neoplasm progression [Unknown]
  - Adverse event [Unknown]
  - Inappropriate schedule of product administration [Unknown]
  - Oxygen therapy [Unknown]
  - Performance status decreased [Unknown]
  - Product use in unapproved indication [Unknown]

NARRATIVE: CASE EVENT DATE: 2018
